FAERS Safety Report 19092069 (Version 5)
Quarter: 2021Q2

REPORT INFORMATION
  Report Type: Other
  Country: BR (occurrence: BR)
  Receive Date: 20210405
  Receipt Date: 20210507
  Transmission Date: 20210717
  Serious: Yes (Other)
  Sender: FDA-Public Use
  Company Number: BR-ROCHE-2792005

PATIENT
  Age: 16 Year
  Sex: Female

DRUGS (5)
  1. ALLEGRA [Suspect]
     Active Substance: FEXOFENADINE HYDROCHLORIDE
     Indication: URTICARIA
     Dosage: 180 MG
     Route: 065
  2. XOLAIR [Suspect]
     Active Substance: OMALIZUMAB
     Dosage: SECOND DOSE, FLASK ? AMPUOLE
     Route: 058
     Dates: start: 20210426
  3. PREDSIM [Concomitant]
     Active Substance: PREDNISOLONE
     Indication: PRODUCT USED FOR UNKNOWN INDICATION
     Dosage: UNK (STOPPEDN AFTER 5 DAYS)
     Route: 065
  4. XOLAIR [Suspect]
     Active Substance: OMALIZUMAB
     Indication: CHRONIC SPONTANEOUS URTICARIA
     Route: 058
     Dates: start: 20210225
  5. XOLAIR [Suspect]
     Active Substance: OMALIZUMAB
     Indication: OEDEMA
     Route: 058
     Dates: start: 20210225

REACTIONS (26)
  - Dyspnoea [Unknown]
  - Headache [Recovered/Resolved]
  - Back pain [Unknown]
  - Hypoaesthesia oral [Unknown]
  - Neck pain [Recovered/Resolved]
  - Rash [Unknown]
  - Pruritus [Not Recovered/Not Resolved]
  - Angioedema [Unknown]
  - Vomiting [Recovered/Resolved]
  - Thermal burn [Not Recovered/Not Resolved]
  - Headache [Recovered/Resolved]
  - Swelling [Unknown]
  - Oedema mucosal [Not Recovered/Not Resolved]
  - Oedema peripheral [Not Recovered/Not Resolved]
  - Swelling face [Not Recovered/Not Resolved]
  - Nausea [Recovered/Resolved]
  - Pain [Not Recovered/Not Resolved]
  - Laryngeal oedema [Recovered/Resolved]
  - Generalised oedema [Not Recovered/Not Resolved]
  - Back pain [Recovered/Resolved]
  - Contusion [Unknown]
  - Neck pain [Recovered/Resolved]
  - Anger [Unknown]
  - Oropharyngeal discomfort [Not Recovered/Not Resolved]
  - Urticaria [Not Recovered/Not Resolved]
  - Illness [Recovered/Resolved]

NARRATIVE: CASE EVENT DATE: 20210225
